FAERS Safety Report 5146626-1 (Version None)
Quarter: 2006Q4

REPORT INFORMATION
  Report Type: 
  Country: None (occurrence: None)
  Receive Date: 20061109
  Receipt Date: 20061026
  Transmission Date: 20070319
  Serious: Yes (Hospitalization)
  Sender: FDA-Public Use
  Company Number: PHRM2006FR02935

PATIENT
  Age: 48 Year
  Sex: Male
  Weight: 71 kg

DRUGS (6)
  1. KEPPRA [Concomitant]
  2. TEGRETOL [Suspect]
     Indication: EPILEPSY
     Dosage: 2400 MG DAILY
     Route: 048
  3. ALDACTONE [Concomitant]
     Dosage: 2 TABLETS DAILY
     Route: 048
  4. BUSPAR [Concomitant]
     Route: 048
  5. EPITOMAX [Concomitant]
     Route: 048
  6. TENORETIC 100 [Suspect]
     Dosage: 1.5 TABLET DAILY
     Route: 048

REACTIONS (11)
  - ANTICONVULSANT DRUG LEVEL INCREASED [None]
  - ASTHENIA [None]
  - BLOOD POTASSIUM DECREASED [None]
  - BLOOD SODIUM DECREASED [None]
  - EPILEPSY [None]
  - FLUID INTAKE RESTRICTION [None]
  - GENERAL PHYSICAL HEALTH DETERIORATION [None]
  - HYPOKALAEMIA [None]
  - HYPONATRAEMIA [None]
  - PSYCHOMOTOR SKILLS IMPAIRED [None]
  - VOMITING [None]
